FAERS Safety Report 7064207 (Version 42)
Quarter: 2018Q3

REPORT INFORMATION
  Report Type: Spontaneous
  Country: GB (occurrence: GB)
  Receive Date: 20090727
  Receipt Date: 20180818
  Transmission Date: 20181010
  Serious: Yes (Life-Threatening, Hospitalization, Disabling, Congenital Anomaly, Other)
  Sender: FDA-Public Use
  Company Number: GB-B.I. PHARMACEUTICALS,INC./RIDGEFIELD-2009-UK-00635UK

PATIENT
  Age: 1 Hour
  Sex: Female
  Weight: 2.2 kg

DRUGS (22)
  1. ENFUVIRTIDE. [Concomitant]
     Active Substance: ENFUVIRTIDE
     Indication: PRODUCT USED FOR UNKNOWN INDICATION
     Route: 064
  2. APTIVUS [Suspect]
     Active Substance: TIPRANAVIR
     Indication: HIV INFECTION
     Dosage: UNK
     Route: 064
  3. PREDNISOLONE. [Concomitant]
     Active Substance: PREDNISOLONE
     Indication: PRODUCT USED FOR UNKNOWN INDICATION
     Route: 064
  4. NOVORAPID [Concomitant]
     Active Substance: INSULIN ASPART
     Route: 064
  5. NITROUS OXIDE. [Concomitant]
     Active Substance: NITROUS OXIDE
     Indication: PRODUCT USED FOR UNKNOWN INDICATION
     Route: 064
  6. ISENTRESS [Suspect]
     Active Substance: RALTEGRAVIR POTASSIUM
     Indication: HIV INFECTION
     Dosage: BID
     Route: 064
  7. APTIVUS [Suspect]
     Active Substance: TIPRANAVIR
     Route: 064
     Dates: start: 20060905, end: 20081023
  8. INTELENCE [Suspect]
     Active Substance: ETRAVIRINE
     Route: 064
  9. PREZISTA [Suspect]
     Active Substance: DARUNAVIR ETHANOLATE
     Indication: HIV INFECTION
     Dosage: 1200 MG
     Route: 064
     Dates: start: 20081023
  10. NOVORAPID [Concomitant]
     Active Substance: INSULIN ASPART
     Indication: GESTATIONAL DIABETES
     Route: 064
  11. INTELENCE [Suspect]
     Active Substance: ETRAVIRINE
     Indication: ANTIRETROVIRAL THERAPY
     Route: 064
     Dates: start: 20081023
  12. ISENTRESS [Suspect]
     Active Substance: RALTEGRAVIR POTASSIUM
     Dosage: 400 MG, QD
     Route: 064
     Dates: start: 20081023, end: 20090221
  13. NORVIR [Suspect]
     Active Substance: RITONAVIR
     Indication: HIV INFECTION
     Route: 064
  14. ZIDOVUDINE. [Suspect]
     Active Substance: ZIDOVUDINE
     Indication: PRODUCT USED FOR UNKNOWN INDICATION
     Route: 064
  15. RALTEGRAVIR. [Suspect]
     Active Substance: RALTEGRAVIR
     Indication: PRODUCT USED FOR UNKNOWN INDICATION
     Route: 064
     Dates: start: 20081023, end: 20090221
  16. ETRAVIRINE [Suspect]
     Active Substance: ETRAVIRINE
     Indication: PRODUCT USED FOR UNKNOWN INDICATION
     Route: 064
     Dates: start: 20081023
  17. NORVIR [Suspect]
     Active Substance: RITONAVIR
     Route: 064
     Dates: start: 20081023
  18. ZIDOVUDINE. [Suspect]
     Active Substance: ZIDOVUDINE
     Route: 064
  19. TRUVADA [Suspect]
     Active Substance: EMTRICITABINE\TENOFOVIR DISOPROXIL FUMARATE
     Indication: HIV INFECTION
     Route: 064
     Dates: start: 20070605, end: 20081023
  20. TIPRANAVIR [Suspect]
     Active Substance: TIPRANAVIR
     Indication: EXPOSURE DURING PREGNANCY
     Route: 064
     Dates: start: 20070605, end: 200810
  21. NORVIR [Suspect]
     Active Substance: RITONAVIR
     Route: 064
     Dates: start: 20060905, end: 20081022
  22. OXYGEN. [Concomitant]
     Active Substance: OXYGEN
     Indication: PRODUCT USED FOR UNKNOWN INDICATION
     Route: 064

REACTIONS (30)
  - Musculoskeletal deformity [Recovered/Resolved with Sequelae]
  - Blood iron decreased [Recovered/Resolved]
  - Lipodystrophy acquired [Not Recovered/Not Resolved]
  - Congenital anomaly [Unknown]
  - Gastrointestinal disorder congenital [Unknown]
  - Exomphalos [Recovered/Resolved with Sequelae]
  - Sepsis [Recovered/Resolved]
  - Caudal regression syndrome [Recovered/Resolved with Sequelae]
  - Musculoskeletal discomfort [Recovered/Resolved with Sequelae]
  - Bladder agenesis [Recovered/Resolved with Sequelae]
  - Congenital ectopic bladder [Unknown]
  - Congenital musculoskeletal anomaly [Recovered/Resolved]
  - Meconium stain [Recovered/Resolved with Sequelae]
  - Genitalia external ambiguous [Recovered/Resolved with Sequelae]
  - Lipodystrophy acquired [Unknown]
  - Spina bifida [Unknown]
  - Umbilical cord abnormality [Recovered/Resolved with Sequelae]
  - Anal atresia [Recovered/Resolved with Sequelae]
  - Anencephaly [Unknown]
  - Foetal exposure during pregnancy [Recovered/Resolved]
  - Gastrointestinal malformation [Unknown]
  - Neural tube defect [Unknown]
  - Spine malformation [Recovered/Resolved with Sequelae]
  - Cloacal exstrophy [Recovered/Resolved with Sequelae]
  - Tethered cord syndrome [Recovered/Resolved with Sequelae]
  - Meningomyelocele [Recovered/Resolved with Sequelae]
  - Congenital genital malformation [Recovered/Resolved with Sequelae]
  - Premature baby [Recovered/Resolved]
  - Erythema [Recovered/Resolved]
  - Umbilical cord abnormality [Unknown]

NARRATIVE: CASE EVENT DATE: 20080614
